FAERS Safety Report 8818183 (Version 2)
Quarter: 2012Q4

REPORT INFORMATION
  Report Type: 
  Country: MX (occurrence: MX)
  Receive Date: 20121001
  Receipt Date: 20121218
  Transmission Date: 20130627
  Serious: Yes (Hospitalization, Other)
  Sender: FDA-Public Use
  Company Number: MX-BAXTER-2012BAX017837

PATIENT
  Age: 69 Year
  Sex: Female
  Weight: 83 kg

DRUGS (7)
  1. DIANEAL PD-2 CON DEXTROSA AL 1.5% SOLUCION PARA DIALISIS PERITONEAL [Suspect]
     Indication: PERITONEAL DIALYSIS
     Route: 033
  2. DIANEAL PD-2 CON DEXTROSA AL 2.5% SOLUCION PARA DIALISIS PERITONEAL [Suspect]
     Indication: PERITONEAL DIALYSIS
     Route: 033
  3. VERAPAMIL [Concomitant]
     Indication: DRUG USE FOR UNKNOWN INDICATION
     Route: 048
  4. CALCITRIOL [Concomitant]
     Indication: DRUG USE FOR UNKNOWN INDICATION
     Route: 048
  5. FOLIC ACID [Concomitant]
     Indication: DRUG USE FOR UNKNOWN INDICATION
     Route: 048
  6. PARACETAMOL [Concomitant]
     Indication: DRUG USE FOR UNKNOWN INDICATION
     Route: 048
  7. VITAMIN B COMPLEX [Concomitant]
     Indication: DRUG USE FOR UNKNOWN INDICATION
     Route: 048

REACTIONS (4)
  - Abdominal distension [Recovered/Resolved]
  - Constipation [Recovered/Resolved]
  - Peritonitis [Recovered/Resolved]
  - Product container issue [Unknown]
